FAERS Safety Report 4451303-6 (Version None)
Quarter: 2004Q3

REPORT INFORMATION
  Report Type: 
  Country: None (occurrence: None)
  Receive Date: 20040916
  Receipt Date: 20040810
  Transmission Date: 20050211
  Serious: Yes (Hospitalization)
  Sender: FDA-Public Use
  Company Number: US-AMGEN-KDL086955

PATIENT
  Sex: Female

DRUGS (3)
  1. KINERET [Suspect]
     Indication: RHEUMATOID ARTHRITIS
     Route: 058
     Dates: start: 20020207, end: 20040628
  2. REMICADE [Concomitant]
  3. PREDNISONE [Concomitant]

REACTIONS (5)
  - CARDIAC INFECTION [None]
  - GASTROINTESTINAL INFECTION [None]
  - PNEUMONIA KLEBSIELLA [None]
  - RASH [None]
  - SEPSIS [None]
